FAERS Safety Report 8486236-1 (Version None)
Quarter: 2012Q3

REPORT INFORMATION
  Report Type: 
  Country: None (occurrence: None)
  Receive Date: 20120703
  Receipt Date: 20120627
  Transmission Date: 20120928
  Serious: No
  Sender: FDA-Public Use
  Company Number: US-B.I. PHARMACEUTICALS,INC./RIDGEFIELD-2012-BP-14646BP

PATIENT
  Age: 59 Year
  Sex: Male

DRUGS (7)
  1. MAGNESIUM OXIDE [Concomitant]
     Dosage: 400 MG
     Route: 048
  2. BENZONATATE [Concomitant]
     Indication: ASBESTOSIS
     Dosage: 100 MG
     Route: 048
  3. BENICAR [Concomitant]
     Indication: HYPERTENSION
     Dosage: 40 MG
     Route: 048
  4. NASONEX [Concomitant]
     Indication: ASBESTOSIS
     Route: 045
  5. SPIRIVA [Suspect]
     Indication: ASBESTOSIS
     Dosage: 18 MCG
     Route: 055
  6. FINASTERIDE [Concomitant]
     Indication: HYPERTENSION
     Dosage: 5 MG
     Route: 048
  7. TAMSULOSIN HCL [Concomitant]
     Indication: BENIGN PROSTATIC HYPERPLASIA
     Dosage: 0.4 MG
     Route: 048

REACTIONS (5)
  - BLADDER MASS [None]
  - DYSURIA [None]
  - NEPHROLITHIASIS [None]
  - URINARY TRACT INFECTION [None]
  - PENILE HAEMORRHAGE [None]
